FAERS Safety Report 12196117 (Version 1)
Quarter: 2016Q1

REPORT INFORMATION
  Report Type: Report from Study
  Country: US (occurrence: US)
  Receive Date: 20160321
  Receipt Date: 20160321
  Transmission Date: 20160526
  Serious: Yes (Other)
  Sender: FDA-Public Use
  Company Number: US-BAXALTA-2016BLT001558

PATIENT
  Age: 44 Year
  Sex: Female

DRUGS (1)
  1. HYQVIA [Suspect]
     Active Substance: HUMAN IMMUNOGLOBULIN G\HYALURONIDASE RECOMBINANT HUMAN
     Indication: PRIMARY IMMUNODEFICIENCY SYNDROME
     Dosage: UNK
     Route: 065

REACTIONS (7)
  - Sinusitis [Unknown]
  - Paralysis [Unknown]
  - Loss of consciousness [Unknown]
  - Head injury [Unknown]
  - Bronchitis [Unknown]
  - Cough [Unknown]
  - Hemiplegia [Unknown]

NARRATIVE: CASE EVENT DATE: 201512
